FAERS Safety Report 16041795 (Version 1)
Quarter: 2019Q2

REPORT INFORMATION
  Report Type: Spontaneous
  Country: US (occurrence: US)
  Receive Date: 20190306
  Receipt Date: 20190306
  Transmission Date: 20190711
  Serious: Yes (Other)
  Sender: FDA-Public Use
  Company Number: None

PATIENT
  Age: 53 Year
  Sex: Male
  Weight: 113.4 kg

DRUGS (7)
  1. METFORMIN HCL [Concomitant]
     Active Substance: METFORMIN HYDROCHLORIDE
  2. HUMALOG KWIKPEN [Concomitant]
     Active Substance: INSULIN LISPRO
  3. OZEMPIC [Suspect]
     Active Substance: SEMAGLUTIDE
  4. HYDROCHLOROTHIAZIDE. [Concomitant]
     Active Substance: HYDROCHLOROTHIAZIDE
  5. HUMULIN N KWIK PEN [Concomitant]
  6. LOSARTAN POTASSIUM. [Concomitant]
     Active Substance: LOSARTAN POTASSIUM
  7. ONE-A-DAY ^OVER 50^ [Concomitant]

REACTIONS (4)
  - Rash generalised [None]
  - Urticaria [None]
  - Eyelids pruritus [None]
  - Dyspnoea [None]

NARRATIVE: CASE EVENT DATE: 20190219
